FAERS Safety Report 13588801 (Version 3)
Quarter: 2017Q2

REPORT INFORMATION
  Report Type: Spontaneous
  Country: IT (occurrence: IT)
  Receive Date: 20170529
  Receipt Date: 20170623
  Transmission Date: 20170830
  Serious: Yes (Other)
  Sender: FDA-Public Use
  Company Number: IT-SUN PHARMACEUTICAL INDUSTRIES LTD-2017RR-141073

PATIENT
  Age: 74 Year
  Sex: Male

DRUGS (2)
  1. CARBOPLATIN. [Suspect]
     Active Substance: CARBOPLATIN
     Indication: NEUROENDOCRINE CARCINOMA
     Dosage: CBDCA/E EVERY 21 DAYS FOR 3 CYCLES,TWO FURTHER CYCLES WERE ADMINISTERED WITH MAINTENANCE OF RESPONSE
     Route: 065
     Dates: start: 201101, end: 201202
  2. ETOPOSIDE. [Suspect]
     Active Substance: ETOPOSIDE
     Indication: NEUROENDOCRINE CARCINOMA
     Dosage: CBDCA/E EVERY 21 DAYS FOR 3 CYCLES,TWO FURTHER CYCLES WERE ADMINISTERED WITH MAINTENANCE OF RESPONSE
     Route: 065
     Dates: start: 201101, end: 201202

REACTIONS (2)
  - Disease progression [Unknown]
  - Herpes zoster disseminated [Unknown]

NARRATIVE: CASE EVENT DATE: 2011
